FAERS Safety Report 19882023 (Version 3)
Quarter: 2024Q2

REPORT INFORMATION
  Report Type: Report from Study
  Country: PT (occurrence: PT)
  Receive Date: 20210924
  Receipt Date: 20240405
  Transmission Date: 20240715
  Serious: Yes (Other)
  Sender: FDA-Public Use
  Company Number: None

PATIENT
  Age: 67 Year
  Sex: Male
  Weight: 54 kg

DRUGS (20)
  1. VELTASSA [Suspect]
     Active Substance: PATIROMER
     Indication: Hyperkalaemia
     Dosage: 8.4 G/DAY
     Route: 048
     Dates: start: 20210528
  2. VELTASSA [Suspect]
     Active Substance: PATIROMER
     Route: 048
     Dates: start: 2021
  3. VELTASSA [Suspect]
     Active Substance: PATIROMER
     Dosage: 3 SACHETS ONCE DAILY AT TEATIME
     Route: 048
     Dates: start: 2021, end: 20210823
  4. VELTASSA [Suspect]
     Active Substance: PATIROMER
     Dates: start: 2021
  5. SPIRONOLACTONE [Concomitant]
     Active Substance: SPIRONOLACTONE
     Route: 048
  6. PENTOXIFYLLINE [Concomitant]
     Active Substance: PENTOXIFYLLINE
     Route: 048
  7. BISOPROLOL [Concomitant]
     Active Substance: BISOPROLOL\BISOPROLOL FUMARATE
  8. PANTOPRAZOLE [Concomitant]
     Active Substance: PANTOPRAZOLE
  9. DAPAGLIFLOZIN [Concomitant]
     Active Substance: DAPAGLIFLOZIN
  10. ACETAMINOPHEN [Concomitant]
     Active Substance: ACETAMINOPHEN
  11. ROSUVASTATIN [Concomitant]
     Active Substance: ROSUVASTATIN
  12. ASPIRIN [Concomitant]
     Active Substance: ASPIRIN
  13. FENTANYL [Concomitant]
     Active Substance: FENTANYL\FENTANYL CITRATE
  14. FUROSEMIDE [Concomitant]
     Active Substance: FUROSEMIDE
  15. ALLOPURINOL [Concomitant]
     Active Substance: ALLOPURINOL
  16. ENTRESTO [Concomitant]
     Active Substance: SACUBITRIL\VALSARTAN
     Dosage: 49 MG/51 MG: AND 1 TABLET AT DINNERTIME
  17. ENTRESTO [Concomitant]
     Active Substance: SACUBITRIL\VALSARTAN
     Dosage: 24 MG/26 MG: 1 TABLET AT BREAKFAST
  18. BISACODYL [Concomitant]
     Active Substance: BISACODYL
  19. LINAGLIPTIN [Concomitant]
     Active Substance: LINAGLIPTIN
  20. LANTUS [Concomitant]
     Active Substance: INSULIN GLARGINE

REACTIONS (9)
  - Metabolic acidosis [Recovered/Resolved]
  - Chronic kidney disease [Unknown]
  - Chronic kidney disease [Unknown]
  - Metabolic acidosis [Recovered/Resolved]
  - Metabolic acidosis [Unknown]
  - Metabolic acidosis [Unknown]
  - Acidosis [Unknown]
  - Acidosis [Unknown]
  - Constipation [Recovered/Resolved]

NARRATIVE: CASE EVENT DATE: 20210101
